FAERS Safety Report 15950680 (Version 1)
Quarter: 2019Q1

REPORT INFORMATION
  Report Type: Spontaneous
  Country: FR (occurrence: FR)
  Receive Date: 20190211
  Receipt Date: 20190211
  Transmission Date: 20190417
  Serious: Yes (Hospitalization)
  Sender: FDA-Public Use
  Company Number: FR-MYLANLABS-2019M1011397

PATIENT
  Age: 84 Year
  Sex: Female
  Weight: 53 kg

DRUGS (4)
  1. SERESTA [Concomitant]
     Active Substance: OXAZEPAM
     Dosage: 30 MILLIGRAM, QD
     Route: 048
  2. LAROXYL [Concomitant]
     Active Substance: AMITRIPTYLINE HYDROCHLORIDE
     Dosage: 100 MILLIGRAM, QD
     Route: 048
  3. PRAMIPEXOLE. [Suspect]
     Active Substance: PRAMIPEXOLE
     Indication: TREMOR
     Dosage: 0.54 MILLIGRAM, QD
     Route: 048
     Dates: start: 20160912, end: 20180525
  4. PROPRANOLOL [Concomitant]
     Active Substance: PROPRANOLOL HYDROCHLORIDE
     Dosage: 80 MILLIGRAM, QD
     Route: 048

REACTIONS (1)
  - Hyponatraemia [Recovered/Resolved]

NARRATIVE: CASE EVENT DATE: 20180518
